FAERS Safety Report 9099485 (Version 1)
Quarter: 2013Q1

REPORT INFORMATION
  Report Type: Report from Study
  Country: US (occurrence: US)
  Receive Date: 20130214
  Receipt Date: 20130214
  Transmission Date: 20140127
  Serious: Yes (Hospitalization, Other)
  Sender: FDA-Public Use
  Company Number: US-ABBOTT-13P-163-1045787-00

PATIENT
  Age: 56 Year
  Sex: Female

DRUGS (4)
  1. HUMIRA PEN [Suspect]
     Indication: CROHN^S DISEASE
  2. HUMIRA PEN [Suspect]
  3. XANAX [Concomitant]
     Indication: PRODUCT USED FOR UNKNOWN INDICATION
  4. ZOLOFT [Concomitant]
     Indication: DEPRESSION
     Dosage: AT BEDTIME

REACTIONS (4)
  - Small intestinal obstruction [Unknown]
  - Unevaluable event [Unknown]
  - Pyrexia [Unknown]
  - Weight decreased [Unknown]
